FAERS Safety Report 24901681 (Version 1)
Quarter: 2025Q1

REPORT INFORMATION
  Report Type: Spontaneous
  Country: US (occurrence: US)
  Receive Date: 20250129
  Receipt Date: 20250129
  Transmission Date: 20250408
  Serious: No
  Sender: SANOFI AVENTIS
  Company Number: US-SA-2025SA027260

PATIENT
  Age: 29 Year
  Sex: Female
  Weight: 61.82 kg

DRUGS (1)
  1. DUPIXENT [Suspect]
     Active Substance: DUPILUMAB
     Indication: Dermatitis atopic
     Route: 058
     Dates: start: 20250109, end: 20250109

REACTIONS (3)
  - Rash erythematous [Unknown]
  - Rash macular [Unknown]
  - Skin swelling [Unknown]

NARRATIVE: CASE EVENT DATE: 20250101
